FAERS Safety Report 5814664-9 (Version None)
Quarter: 2008Q3

REPORT INFORMATION
  Report Type: 
  Country: None (occurrence: None)
  Receive Date: 20080718
  Receipt Date: 20080229
  Transmission Date: 20090109
  Serious: No
  Sender: FDA-Public Use
  Company Number: US-KINGPHARMUSA00001-K200800265

PATIENT

DRUGS (5)
  1. LEVOXYL [Suspect]
     Indication: HYPOTHYROIDISM
     Dosage: 50 MCG, QD
     Route: 048
     Dates: start: 20050101, end: 20071201
  2. LEVOXYL [Suspect]
     Dosage: 75 MCG, QD
     Route: 048
     Dates: start: 20071201, end: 20080215
  3. LEVOXYL [Suspect]
     Dosage: 88 MCG, QD
     Route: 048
     Dates: start: 20080216
  4. FOSAMAX [Concomitant]
     Dosage: UNK, QW
  5. VITAMIN A [Concomitant]
     Dosage: UNK, QW

REACTIONS (2)
  - BLOOD THYROID STIMULATING HORMONE DECREASED [None]
  - INSOMNIA [None]
